FAERS Safety Report 9314795 (Version 2)
Quarter: 2013Q3

REPORT INFORMATION
  Report Type: Spontaneous
  Country: BR (occurrence: BR)
  Receive Date: 20130529
  Receipt Date: 20130801
  Transmission Date: 20140515
  Serious: Yes (Death)
  Sender: FDA-Public Use
  Company Number: BR-ROCHE-1229742

PATIENT
  Age: 86 Year
  Sex: Female

DRUGS (16)
  1. LUCENTIS [Suspect]
     Indication: AGE-RELATED MACULAR DEGENERATION
     Route: 050
     Dates: start: 20130220
  2. LUCENTIS [Suspect]
     Route: 050
     Dates: start: 20130327
  3. SYNTHROID [Concomitant]
  4. OMEPRAZOLE [Concomitant]
  5. DIGOXINA [Concomitant]
  6. SELOZOK [Concomitant]
  7. GEROVITAL [Concomitant]
  8. VITALUX PLUS [Concomitant]
  9. VENALOT (BRAZIL) [Concomitant]
  10. NUTRICAL [Concomitant]
  11. SIFROL [Concomitant]
  12. EQUILID [Concomitant]
  13. LEXOTAN [Concomitant]
  14. CEFALEXINA [Concomitant]
  15. DEXAMETASON [Concomitant]
  16. DIPIRONE [Concomitant]

REACTIONS (1)
  - Thrombophlebitis [Fatal]
